FAERS Safety Report 8602394-X (Version None)
Quarter: 2012Q3

REPORT INFORMATION
  Report Type: 
  Country: None (occurrence: None)
  Receive Date: 20120817
  Receipt Date: 19950327
  Transmission Date: 20120928
  Serious: Yes (Hospitalization)
  Sender: FDA-Public Use
  Company Number: US-ROCHE-1101936

PATIENT
  Sex: Female

DRUGS (4)
  1. NITROGLYCERIN [Concomitant]
     Route: 060
  2. ACTIVASE [Suspect]
     Indication: ANGINA UNSTABLE
  3. ASPIRIN [Concomitant]
  4. HEPARIN [Concomitant]
     Dosage: PUMP AT 20 UNITS PER HOUR

REACTIONS (1)
  - PAIN [None]
